FAERS Safety Report 7461026-7 (Version None)
Quarter: 2011Q2

REPORT INFORMATION
  Report Type: 
  Country: None (occurrence: None)
  Receive Date: 20110505
  Receipt Date: 20110428
  Transmission Date: 20111010
  Serious: Yes (Hospitalization, Other)
  Sender: FDA-Public Use
  Company Number: US-GENZYME-FLUD-1001105

PATIENT

DRUGS (9)
  1. GRANULOCYTE COLONY STIMULATING FACTOR [Concomitant]
     Dosage: UNK
     Route: 065
     Dates: start: 20090902
  2. CYCLOPHOSPHAMIDE [Suspect]
     Indication: PREMEDICATION
     Dosage: 60 MG/KG, QD DAY -6
     Route: 042
  3. RITUXIMAB [Suspect]
     Dosage: UNK 1X/W (DAY +6)
     Route: 042
  4. GRANULOCYTE COLONY STIMULATING FACTOR [Concomitant]
     Indication: WHITE BLOOD CELL COUNT DECREASED
     Dosage: UNK (D +14)
     Dates: start: 20090819
  5. RITUXIMAB [Suspect]
     Dosage: UNK 1X/W (DAY -1)
     Route: 042
  6. RITUXIMAB [Suspect]
     Dosage: UNK 1X/W (DAY +15)
     Route: 042
  7. ZOSYN [Concomitant]
     Indication: PRODUCT USED FOR UNKNOWN INDICATION
     Dosage: UNK
     Route: 065
     Dates: end: 20090906
  8. FLUDARA [Suspect]
     Indication: PREMEDICATION
     Dosage: 25 MG/M2, QD ON DAYS -6 TO -2
     Route: 042
  9. RITUXIMAB [Suspect]
     Indication: PREMEDICATION
     Dosage: 375 MG/M2, QD ON DAY -8
     Route: 042

REACTIONS (5)
  - PNEUMONIA FUNGAL [None]
  - NEUTROPENIA [None]
  - VENTRICULAR ARRHYTHMIA [None]
  - PANCYTOPENIA [None]
  - TRANSFUSION REACTION [None]
